FAERS Safety Report 20330520 (Version 2)
Quarter: 2022Q1

REPORT INFORMATION
  Report Type: Report from Study
  Country: US (occurrence: US)
  Receive Date: 20220113
  Receipt Date: 20220218
  Transmission Date: 20220423
  Serious: Yes (Other)
  Sender: FDA-Public Use
  Company Number: US-AMGEN-USASL2021189218

PATIENT
  Age: 76 Year
  Sex: Female

DRUGS (2)
  1. ENBREL [Suspect]
     Active Substance: ETANERCEPT
     Indication: Rheumatoid arthritis
     Dosage: 50 MILLIGRAM, QWK
     Route: 065
  2. ENBREL [Suspect]
     Active Substance: ETANERCEPT
     Dosage: 50 MILLIGRAM, QWK
     Route: 065

REACTIONS (8)
  - Neuropathy peripheral [Not Recovered/Not Resolved]
  - Nausea [Unknown]
  - Injection site discomfort [Unknown]
  - Injection site pain [Unknown]
  - Joint swelling [Unknown]
  - Pain [Unknown]
  - Hypertension [Not Recovered/Not Resolved]
  - Abdominal pain [Unknown]

NARRATIVE: CASE EVENT DATE: 20211221
